FAERS Safety Report 8974639 (Version 2)
Quarter: 2013Q1

REPORT INFORMATION
  Report Type: Spontaneous
  Country: US (occurrence: US)
  Receive Date: 20121219
  Receipt Date: 20130111
  Transmission Date: 20140127
  Serious: Yes (Hospitalization)
  Sender: FDA-Public Use
  Company Number: US-INCYTE CORPORATION-2012IN002603

PATIENT
  Age: 76 None
  Sex: Female
  Weight: 69.39 kg

DRUGS (13)
  1. JAKAFI [Suspect]
     Indication: MYELOFIBROSIS
     Dosage: 15 MG, BID
     Route: 048
     Dates: start: 201209, end: 2012
  2. JAKAFI [Suspect]
     Dosage: 25 MG, BID
     Route: 048
     Dates: start: 2012, end: 20121206
  3. JAKAFI [Suspect]
     Dosage: 5 MG, BID
     Route: 048
     Dates: start: 20121209, end: 2012
  4. JAKAFI [Suspect]
     Dosage: 10 MG, QD (ONE-HALF 20 MG TABLET)
     Route: 048
     Dates: start: 2012
  5. LIPITOR [Concomitant]
     Dosage: 40 MG, QD
  6. ATENOLOL [Concomitant]
     Dosage: 50 MG, QD
  7. XANAX [Concomitant]
     Dosage: 0.5 MG, TID
  8. GUAIFENESIN [Concomitant]
     Dosage: UNK, PRN
  9. EVISTA [Concomitant]
     Dosage: 60 MG, QD
  10. ASPIRIN [Concomitant]
     Dosage: 81 MG, QD
  11. PERCOCET [Concomitant]
     Dosage: UNK, PRN
  12. CHLORPHENIRAMINE [Concomitant]
     Dosage: 5 MG, BID
  13. LACTOBACILLUS [Concomitant]
     Dosage: UNK, BID

REACTIONS (15)
  - Colitis [Recovering/Resolving]
  - Diarrhoea [Recovered/Resolved]
  - Abdominal pain [Recovering/Resolving]
  - Weight decreased [Recovering/Resolving]
  - Pain in extremity [Recovering/Resolving]
  - Asthenia [Recovering/Resolving]
  - Neck pain [Recovering/Resolving]
  - Productive cough [Recovering/Resolving]
  - Fatigue [Recovering/Resolving]
  - Anaemia [Recovering/Resolving]
  - Urinary tract infection [Recovering/Resolving]
  - Thrombocytopenia [Recovering/Resolving]
  - Petechiae [Recovering/Resolving]
  - Ecchymosis [Recovering/Resolving]
  - Medication error [Unknown]
